FAERS Safety Report 4598751-1 (Version None)
Quarter: 2005Q1

REPORT INFORMATION
  Report Type: 
  Country: None (occurrence: None)
  Receive Date: 20050301
  Receipt Date: 20050215
  Transmission Date: 20050727
  Serious: Yes (Hospitalization)
  Sender: FDA-Public Use
  Company Number: 2005-00442

PATIENT
  Age: 61 Year
  Sex: Female
  Weight: 68 kg

DRUGS (10)
  1. HYDROXYZINE [Suspect]
     Indication: PRURITUS
     Dosage: 1 TABLET, SINGLE, ORAL
     Route: 048
     Dates: start: 20041103, end: 20041103
  2. HYDROXYZINE HCL [Suspect]
     Indication: ANXIETY
     Dosage: 1 TABLET, SINGLE, ORAL
     Route: 048
     Dates: start: 20050108, end: 20050108
  3. HYDROXYZINE HCL [Suspect]
     Indication: PRURITUS
     Dosage: 1 TABLET, SINGLE, ORAL
     Route: 048
     Dates: start: 20050108, end: 20050108
  4. HYDROXYZINE HCL [Suspect]
     Indication: URTICARIA
     Dosage: 1 TABLET, SINGLE, ORAL
     Route: 048
     Dates: start: 20050108, end: 20050108
  5. HYDROXYZINE [Concomitant]
  6. CATAPRES-TTS-1 [Concomitant]
  7. COZAAR [Concomitant]
  8. VERAPAMIL [Concomitant]
  9. LOPRESSOR [Concomitant]
  10. BUSPAR [Concomitant]

REACTIONS (8)
  - BLOOD PRESSURE INCREASED [None]
  - CATHETER SITE CELLULITIS [None]
  - HEART RATE IRREGULAR [None]
  - MEDICATION ERROR [None]
  - MYOCARDIAL INFARCTION [None]
  - PHARMACEUTICAL PRODUCT COMPLAINT [None]
  - REACTION TO MEDICAL AGENT PRESERVATIVES [None]
  - TREMOR [None]
